FAERS Safety Report 21849117 (Version 1)
Quarter: 2023Q1

REPORT INFORMATION
  Report Type: Spontaneous
  Country: US (occurrence: US)
  Receive Date: 20230111
  Receipt Date: 20230111
  Transmission Date: 20230417
  Serious: No
  Sender: FDA-Public Use
  Company Number: US-TAKEDA-2023TUS001069

PATIENT
  Sex: Female
  Weight: 61 kg

DRUGS (2)
  1. TRINTELLIX [Suspect]
     Active Substance: VORTIOXETINE HYDROBROMIDE
     Indication: Anxiety disorder
     Dosage: 10 MILLIGRAM
     Route: 065
     Dates: start: 2022
  2. TRINTELLIX [Suspect]
     Active Substance: VORTIOXETINE HYDROBROMIDE
     Dosage: 15 MILLIGRAM
     Route: 065
     Dates: start: 2022

REACTIONS (5)
  - Anxiety [Unknown]
  - Heart rate increased [Unknown]
  - Gastritis [Unknown]
  - Product use in unapproved indication [Unknown]
  - Nausea [Unknown]
